FAERS Safety Report 23093228 (Version 2)
Quarter: 2023Q4

REPORT INFORMATION
  Report Type: Report from Study
  Country: ES (occurrence: ES)
  Receive Date: 20231022
  Receipt Date: 20231028
  Transmission Date: 20240109
  Serious: No
  Sender: FDA-Public Use
  Company Number: ES-JNJFOC-20231032191

PATIENT
  Age: 3 Decade
  Sex: Female

DRUGS (8)
  1. SELEXIPAG [Suspect]
     Active Substance: SELEXIPAG
     Indication: Pulmonary arterial hypertension
     Route: 048
     Dates: start: 20230606, end: 20230608
  2. SELEXIPAG [Suspect]
     Active Substance: SELEXIPAG
     Dosage: THERAPY START DATE: 08/JUN/2023
     Route: 048
     Dates: end: 20230910
  3. MACITENTAN [Suspect]
     Active Substance: MACITENTAN
     Indication: Pulmonary arterial hypertension
     Route: 048
     Dates: start: 20230527
  4. MACITENTAN [Suspect]
     Active Substance: MACITENTAN
     Indication: Pulmonary arterial hypertension
  5. REVATIO [Concomitant]
     Active Substance: SILDENAFIL CITRATE
     Indication: Pulmonary arterial hypertension
     Route: 048
     Dates: start: 20221130, end: 20221205
  6. REVATIO [Concomitant]
     Active Substance: SILDENAFIL CITRATE
     Route: 048
     Dates: start: 20221205
  7. VENTAVIS [Concomitant]
     Active Substance: ILOPROST
     Indication: Pulmonary arterial hypertension
     Route: 055
     Dates: start: 20230526, end: 20230528
  8. VENTAVIS [Concomitant]
     Active Substance: ILOPROST
     Indication: Pulmonary arterial hypertension

REACTIONS (3)
  - Diarrhoea [Unknown]
  - Blood thyroid stimulating hormone abnormal [Unknown]
  - N-terminal prohormone brain natriuretic peptide abnormal [Unknown]

NARRATIVE: CASE EVENT DATE: 20230606
